FAERS Safety Report 9450515 (Version 2)
Quarter: 2013Q4

REPORT INFORMATION
  Report Type: Report from Study
  Country: ES (occurrence: ES)
  Receive Date: 20130809
  Receipt Date: 20131127
  Transmission Date: 20140711
  Serious: Yes (Hospitalization, Other)
  Sender: FDA-Public Use
  Company Number: ES-ASTELLAS-2013US008292

PATIENT
  Age: 58 Year
  Sex: Male

DRUGS (5)
  1. ERLOTINIB TABLET [Suspect]
     Indication: LUNG NEOPLASM MALIGNANT
     Dosage: 150 MG, UID/QD
     Route: 048
     Dates: start: 20121225
  2. BEVACIZUMAB [Suspect]
     Indication: LUNG NEOPLASM MALIGNANT
     Dosage: 570 MG, Q3W
     Route: 042
     Dates: start: 20121221
  3. CARBOPLATIN [Suspect]
     Indication: LUNG NEOPLASM MALIGNANT
     Dosage: 890 MG, Q3W
     Route: 042
     Dates: start: 20121221
  4. PACLITAXEL [Suspect]
     Indication: LUNG NEOPLASM MALIGNANT
     Dosage: 270 MG, Q3W
     Route: 042
     Dates: start: 20121221
  5. METFORMIN HYDROCHLORIDE [Concomitant]
     Indication: DIABETES MELLITUS
     Dosage: 2 G, UID/QD
     Route: 048
     Dates: start: 20130402

REACTIONS (4)
  - Malignant neoplasm progression [Unknown]
  - Hypercalcaemia [Recovered/Resolved]
  - Cancer pain [Recovered/Resolved]
  - Tumour associated fever [Recovered/Resolved]
